FAERS Safety Report 14326668 (Version 2)
Quarter: 2018Q1

REPORT INFORMATION
  Report Type: Spontaneous
  Country: US (occurrence: US)
  Receive Date: 20171227
  Receipt Date: 20180211
  Transmission Date: 20180509
  Serious: No
  Sender: FDA-Public Use
  Company Number: US-TEVA-2017-US-829301

PATIENT
  Age: 76 Year
  Sex: Female

DRUGS (1)
  1. METOPROLOL SUCCINATE. [Suspect]
     Active Substance: METOPROLOL SUCCINATE
     Indication: BLOOD PRESSURE MEASUREMENT
     Route: 048
     Dates: end: 20171117

REACTIONS (2)
  - Dysgeusia [Unknown]
  - Alopecia [Not Recovered/Not Resolved]
